FAERS Safety Report 10666485 (Version 5)
Quarter: 2015Q1

REPORT INFORMATION
  Report Type: Spontaneous
  Country: US (occurrence: US)
  Receive Date: 20141221
  Receipt Date: 20150211
  Transmission Date: 20150720
  Serious: Yes (Other)
  Sender: FDA-Public Use
  Company Number: US-GLAXOSMITHKLINE-A1066181A

PATIENT
  Sex: Female

DRUGS (4)
  1. TYKERB [Suspect]
     Active Substance: LAPATINIB DITOSYLATE
     Dosage: 1000 MG, UNK
     Route: 065
  2. TYKERB [Suspect]
     Active Substance: LAPATINIB DITOSYLATE
     Indication: PRODUCT USED FOR UNKNOWN INDICATION
     Dosage: 250 MG, U
     Route: 065
  3. TYKERB [Suspect]
     Active Substance: LAPATINIB DITOSYLATE
     Dosage: 500 MG, UNK
     Dates: start: 20140613
  4. TYKERB [Suspect]
     Active Substance: LAPATINIB DITOSYLATE
     Dosage: 500 MG, UNK
     Route: 065

REACTIONS (9)
  - Pyrexia [Unknown]
  - Hypokalaemia [Unknown]
  - Diarrhoea [Recovering/Resolving]
  - Vomiting [Unknown]
  - Nasopharyngitis [Unknown]
  - Oropharyngeal pain [Unknown]
  - Toothache [Unknown]
  - Malaise [Unknown]
  - Mastectomy [Unknown]
